FAERS Safety Report 17110898 (Version 2)
Quarter: 2019Q4

REPORT INFORMATION
  Report Type: Report from Study
  Country: CA (occurrence: CA)
  Receive Date: 20191204
  Receipt Date: 20191205
  Transmission Date: 20200122
  Serious: No
  Sender: FDA-Public Use
  Company Number: NVSC2019CA058071

PATIENT
  Sex: Male

DRUGS (12)
  1. OTEZLA [Concomitant]
     Active Substance: APREMILAST
     Indication: PRODUCT USED FOR UNKNOWN INDICATION
     Dosage: 230 MG, Q2W
     Route: 048
     Dates: start: 2016
  2. FOLIC ACID. [Concomitant]
     Active Substance: FOLIC ACID
     Indication: PRODUCT USED FOR UNKNOWN INDICATION
     Dosage: 5 MG, QD
     Route: 048
     Dates: start: 20141024
  3. CLOBETASOL [Concomitant]
     Active Substance: CLOBETASOL
     Indication: PRODUCT USED FOR UNKNOWN INDICATION
     Dosage: 10 MG, TID
     Route: 048
     Dates: start: 20160321
  4. METHOTREXATE. [Concomitant]
     Active Substance: METHOTREXATE
     Indication: PRODUCT USED FOR UNKNOWN INDICATION
     Dosage: 2.5 MG, OT
     Route: 048
     Dates: start: 20181009
  5. METHYLPREDNIS [Concomitant]
     Indication: PRODUCT USED FOR UNKNOWN INDICATION
     Dosage: 40 MG, QMO
     Route: 048
     Dates: start: 20181018
  6. KETOROLAC TROMETHALINE [Concomitant]
     Active Substance: KETOROLAC TROMETHAMINE
     Indication: INTERVERTEBRAL DISC PROTRUSION
     Dosage: 2 DF, QD
     Route: 048
     Dates: start: 20170824
  7. COSENTYX [Suspect]
     Active Substance: SECUKINUMAB
     Indication: PSORIASIS
  8. AZATHIOPRINE. [Concomitant]
     Active Substance: AZATHIOPRINE
     Indication: PRODUCT USED FOR UNKNOWN INDICATION
     Dosage: 250 MG, OT
     Route: 048
     Dates: start: 20190829
  9. COSENTYX [Suspect]
     Active Substance: SECUKINUMAB
     Indication: PSORIATIC ARTHROPATHY
     Dosage: 150 MG, QMO
     Route: 058
     Dates: start: 20181218
  10. MOXIFLOXACIN. [Concomitant]
     Active Substance: MOXIFLOXACIN
     Indication: PRODUCT USED FOR UNKNOWN INDICATION
     Dosage: 400 MG, QD
     Route: 048
     Dates: start: 20160324
  11. CEPHALEXIN. [Concomitant]
     Active Substance: CEPHALEXIN
     Indication: PRODUCT USED FOR UNKNOWN INDICATION
     Dosage: 500 MG, QID
     Route: 048
     Dates: start: 20150105
  12. PROMAZINE [Concomitant]
     Active Substance: PROMAZINE
     Indication: GASTROINTESTINAL DISORDER
     Dosage: 1 DF, QD (STRENGTH: 20)
     Route: 048
     Dates: start: 2016

REACTIONS (1)
  - C-reactive protein increased [Unknown]
